FAERS Safety Report 26102078 (Version 2)
Quarter: 2025Q4

REPORT INFORMATION
  Report Type: Spontaneous
  Country: JP (occurrence: JP)
  Receive Date: 20251128
  Receipt Date: 20251216
  Transmission Date: 20260117
  Serious: Yes (Hospitalization, Other)
  Sender: AMGEN
  Company Number: JP-AMGEN-JPNSP2025231321

PATIENT
  Age: 70 Year
  Sex: Female
  Weight: 40 kg

DRUGS (5)
  1. LUMAKRAS [Suspect]
     Active Substance: SOTORASIB
     Indication: Lung neoplasm malignant
     Dosage: 960 MILLIGRAM
     Route: 048
     Dates: start: 20250916, end: 20251120
  2. KEYTRUDA [Suspect]
     Active Substance: PEMBROLIZUMAB
     Indication: Lung neoplasm malignant
     Dosage: 200 MILLIGRAM
     Route: 065
     Dates: start: 20241223, end: 20250820
  3. ALFACALCIDOL [Concomitant]
     Active Substance: ALFACALCIDOL
     Dosage: 2 DOSAGE FORM, QD
     Dates: start: 20241218
  4. CALCIUM ASPARTATE [Concomitant]
     Active Substance: CALCIUM ASPARTATE
     Dosage: 2 DOSAGE FORM, BID, 200 MG, (INTO TWO DIVIDED DOSES, AFTER BREAKFAST AND DINNER)
     Dates: start: 20241218
  5. URSODIOL [Concomitant]
     Active Substance: URSODIOL
     Dosage: 3 DOSAGE FORM, 100 MG, (INTO 3 DIVIDED DOSES AFTER EACH MEAL)
     Route: 048
     Dates: start: 20251111

REACTIONS (2)
  - Liver disorder [Recovering/Resolving]
  - Cholangitis [Recovered/Resolved]

NARRATIVE: CASE EVENT DATE: 20251111
